FAERS Safety Report 4888933-3 (Version None)
Quarter: 2005Q4

REPORT INFORMATION
  Report Type: 
  Country: None (occurrence: None)
  Receive Date: 20051215
  Receipt Date: 20050531
  Transmission Date: 20060501
  Serious: Yes (Life-Threatening, Other)
  Sender: FDA-Public Use
  Company Number: 2005081864

PATIENT
  Age: 63 Year
  Sex: Male
  Weight: 90.7194 kg

DRUGS (4)
  1. BEXTRA [Suspect]
     Indication: ARTHRITIS
     Dosage: 10 MG (10 MG,1 IN 1 D),ORAL
     Route: 048
  2. LIPITOR [Concomitant]
  3. COREG [Concomitant]
  4. PLAVIX [Concomitant]

REACTIONS (2)
  - MYOCARDIAL INFARCTION [None]
  - PRURITUS [None]
